FAERS Safety Report 8684717 (Version 3)
Quarter: 2013Q1

REPORT INFORMATION
  Report Type: Spontaneous
  Country: US (occurrence: US)
  Receive Date: 20120726
  Receipt Date: 20130312
  Transmission Date: 20140127
  Serious: Yes (Life-Threatening, Other)
  Sender: FDA-Public Use
  Company Number: US-ASTRAZENECA-2011SE37496

PATIENT
  Age: 19312 Day
  Sex: Male
  Weight: 77.1 kg

DRUGS (36)
  1. SEROQUEL XR [Suspect]
     Indication: BIPOLAR DISORDER
     Route: 048
     Dates: start: 201105, end: 20110620
  2. SEROQUEL XR [Suspect]
     Indication: SCHIZOPHRENIA, PARANOID TYPE
     Route: 048
     Dates: start: 201105, end: 20110620
  3. SEROQUEL XR [Suspect]
     Indication: ANXIETY
     Route: 048
     Dates: start: 201105, end: 20110620
  4. SEROQUEL XR [Suspect]
     Indication: DEPRESSION
     Route: 048
     Dates: start: 201105, end: 20110620
  5. SEROQUEL XR [Suspect]
     Indication: BIPOLAR DISORDER
     Dosage: 50 MG AM AND 200 MG HS
     Route: 048
     Dates: start: 20110620
  6. SEROQUEL XR [Suspect]
     Indication: SCHIZOPHRENIA, PARANOID TYPE
     Dosage: 50 MG AM AND 200 MG HS
     Route: 048
     Dates: start: 20110620
  7. SEROQUEL XR [Suspect]
     Indication: ANXIETY
     Dosage: 50 MG AM AND 200 MG HS
     Route: 048
     Dates: start: 20110620
  8. SEROQUEL XR [Suspect]
     Indication: DEPRESSION
     Dosage: 50 MG AM AND 200 MG HS
     Route: 048
     Dates: start: 20110620
  9. SEROQUEL XR [Suspect]
     Indication: BIPOLAR DISORDER
     Route: 048
     Dates: start: 201109
  10. SEROQUEL XR [Suspect]
     Indication: SCHIZOPHRENIA, PARANOID TYPE
     Route: 048
     Dates: start: 201109
  11. SEROQUEL XR [Suspect]
     Indication: ANXIETY
     Route: 048
     Dates: start: 201109
  12. SEROQUEL XR [Suspect]
     Indication: DEPRESSION
     Route: 048
     Dates: start: 201109
  13. SEROQUEL XR [Suspect]
     Indication: BIPOLAR DISORDER
     Dosage: 2 HALFS, TWICE A DAY
     Route: 048
  14. SEROQUEL XR [Suspect]
     Indication: SCHIZOPHRENIA, PARANOID TYPE
     Dosage: 2 HALFS, TWICE A DAY
     Route: 048
  15. SEROQUEL XR [Suspect]
     Indication: ANXIETY
     Dosage: 2 HALFS, TWICE A DAY
     Route: 048
  16. SEROQUEL XR [Suspect]
     Indication: DEPRESSION
     Dosage: 2 HALFS, TWICE A DAY
     Route: 048
  17. SEROQUEL XR [Suspect]
     Indication: BIPOLAR DISORDER
     Route: 048
  18. SEROQUEL XR [Suspect]
     Indication: SCHIZOPHRENIA, PARANOID TYPE
     Route: 048
  19. SEROQUEL XR [Suspect]
     Indication: ANXIETY
     Route: 048
  20. SEROQUEL XR [Suspect]
     Indication: DEPRESSION
     Route: 048
  21. SEROQUEL XR [Suspect]
     Indication: BIPOLAR DISORDER
     Dosage: 50-100 MG, DAILY
     Route: 048
  22. SEROQUEL XR [Suspect]
     Indication: SCHIZOPHRENIA, PARANOID TYPE
     Dosage: 50-100 MG, DAILY
     Route: 048
  23. SEROQUEL XR [Suspect]
     Indication: ANXIETY
     Dosage: 50-100 MG, DAILY
     Route: 048
  24. SEROQUEL XR [Suspect]
     Indication: DEPRESSION
     Dosage: 50-100 MG, DAILY
     Route: 048
  25. ATIVAN [Concomitant]
     Indication: DEPRESSION
     Route: 048
  26. ATIVAN [Concomitant]
     Indication: MENTAL DISORDER
     Route: 048
  27. ATIVAN [Concomitant]
     Indication: DEPRESSION
     Route: 048
  28. ATIVAN [Concomitant]
     Indication: MENTAL DISORDER
     Route: 048
  29. VISTARIL [Concomitant]
     Indication: RELAXATION THERAPY
     Dosage: PRN
     Route: 048
  30. COLESTIPOL [Concomitant]
     Indication: BLOOD CHOLESTEROL ABNORMAL
     Route: 048
  31. LOW DOSE OF ASPIRIN [Concomitant]
     Indication: ANTICOAGULANT THERAPY
     Route: 048
  32. LOW DOSE OF ASPIRIN [Concomitant]
     Indication: ANTICOAGULANT THERAPY
     Route: 048
  33. GEMFIBROZIL [Concomitant]
     Indication: BLOOD CHOLESTEROL INCREASED
  34. GEMFIBROZIL [Concomitant]
     Indication: BLOOD TRIGLYCERIDES INCREASED
  35. GEMFIBROZIL [Concomitant]
     Indication: BLOOD CHOLESTEROL INCREASED
     Route: 048
  36. GEMFIBROZIL [Concomitant]
     Indication: BLOOD TRIGLYCERIDES INCREASED
     Route: 048

REACTIONS (13)
  - Coma [Unknown]
  - Renal cancer [Unknown]
  - Renal mass [Unknown]
  - Arthralgia [Unknown]
  - Pulse pressure decreased [Unknown]
  - Adverse event [Unknown]
  - Fall [Unknown]
  - Head injury [Unknown]
  - Emotional distress [Unknown]
  - Post procedural complication [Unknown]
  - Blood pressure decreased [Recovering/Resolving]
  - Intentional drug misuse [Unknown]
  - Drug dose omission [Unknown]
